FAERS Safety Report 7730619-1 (Version None)
Quarter: 2011Q3

REPORT INFORMATION
  Report Type: 
  Country: None (occurrence: None)
  Receive Date: 20110906
  Receipt Date: 20110901
  Transmission Date: 20111222
  Serious: Yes (Death, Other)
  Sender: FDA-Public Use
  Company Number: US-AMGEN-QUU416343

PATIENT
  Age: 68 Year
  Sex: Male

DRUGS (2)
  1. NPLATE [Suspect]
     Indication: IDIOPATHIC THROMBOCYTOPENIC PURPURA
     Dosage: 2 MUG/KG, UNK
     Dates: start: 20091109, end: 20110520
  2. IMMUNOGLOBULIN HUMAN ANTI-RH [Concomitant]
     Dosage: UNK UNK, UNK
     Dates: start: 20090719, end: 20091025

REACTIONS (7)
  - THERAPEUTIC RESPONSE DECREASED [None]
  - SEPSIS [None]
  - RESPIRATORY TRACT INFECTION [None]
  - HEPATORENAL FAILURE [None]
  - DRUG INEFFECTIVE [None]
  - HEPATIC CIRRHOSIS [None]
  - PLATELET COUNT DECREASED [None]
